FAERS Safety Report 14589599 (Version 1)
Quarter: 2018Q1

REPORT INFORMATION
  Report Type: Spontaneous
  Country: DE (occurrence: DE)
  Receive Date: 20180302
  Receipt Date: 20180302
  Transmission Date: 20180509
  Serious: Yes (Other)
  Sender: FDA-Public Use
  Company Number: DE-BIOGEN-2017BI00457563

PATIENT
  Age: 51 Year
  Sex: Female
  Weight: 69 kg

DRUGS (4)
  1. TIZANIDINE. [Concomitant]
     Active Substance: TIZANIDINE
     Indication: MUSCLE SPASMS
     Dosage: TIZANIDINE HAD BEEN STARTED SEVERAL MONTHS AGO
     Route: 065
     Dates: start: 201706, end: 20170817
  2. ZINBRYTA [Suspect]
     Active Substance: DACLIZUMAB
     Indication: RELAPSING-REMITTING MULTIPLE SCLEROSIS
     Route: 065
     Dates: start: 201611
  3. ZINBRYTA [Suspect]
     Active Substance: DACLIZUMAB
     Route: 058
     Dates: start: 201704
  4. TRINORDIOL (ETHINYL ESTRADIOL/LEVONORGESTREL) [Concomitant]
     Indication: CONTRACEPTION
     Dosage: TRINORDIOL WAS TAKEN FOR YEARS
     Route: 065

REACTIONS (2)
  - Drug-induced liver injury [Recovered/Resolved]
  - Muscle spasms [Unknown]

NARRATIVE: CASE EVENT DATE: 201708
